FAERS Safety Report 9695878 (Version 1)
Quarter: 2013Q4

REPORT INFORMATION
  Report Type: Spontaneous
  Country: US (occurrence: None)
  Receive Date: 20131115
  Receipt Date: 20131115
  Transmission Date: 20140711
  Serious: Yes (Disabling)
  Sender: FDA-Public Use
  Company Number: 2009836

PATIENT
  Sex: 0

DRUGS (2)
  1. EPINEPHRINE [Suspect]
     Indication: VASOCONSTRICTION
  2. EPINEPHRINE [Suspect]
     Indication: HAEMORRHAGE

REACTIONS (2)
  - Carpal tunnel syndrome [None]
  - Injection site extravasation [None]
